FAERS Safety Report 10406010 (Version 2)
Quarter: 2014Q4

REPORT INFORMATION
  Report Type: Spontaneous
  Country: US (occurrence: US)
  Receive Date: 20140825
  Receipt Date: 20141010
  Transmission Date: 20150528
  Serious: Yes (Other)
  Sender: FDA-Public Use
  Company Number: US-ELI_LILLY_AND_COMPANY-US201408005200

PATIENT
  Sex: Female
  Weight: 165.8 kg

DRUGS (1)
  1. HUMALOG [Suspect]
     Active Substance: INSULIN LISPRO
     Indication: GESTATIONAL DIABETES
     Dosage: UNK
     Route: 065
     Dates: start: 201404, end: 20140514

REACTIONS (2)
  - Gestational hypertension [Recovered/Resolved]
  - Maternal exposure during pregnancy [Recovered/Resolved]
